FAERS Safety Report 11585168 (Version 1)
Quarter: 2015Q4

REPORT INFORMATION
  Report Type: Report from Study
  Country: US (occurrence: US)
  Receive Date: 20151001
  Receipt Date: 20151001
  Transmission Date: 20160304
  Serious: Yes (Hospitalization, Other)
  Sender: FDA-Public Use
  Company Number: US-NPS_PHARMACEUTICALS-001867

PATIENT
  Age: 57 Year
  Sex: Female

DRUGS (10)
  1. LOMOTIL [Concomitant]
     Active Substance: ATROPINE SULFATE\DIPHENOXYLATE HYDROCHLORIDE
     Dosage: DF
  2. BENADRYL [Concomitant]
     Active Substance: DIPHENHYDRAMINE HYDROCHLORIDE
     Dosage: DF
  3. TRAZODONE [Concomitant]
     Active Substance: TRAZODONE HYDROCHLORIDE
     Dosage: DF
  4. TPN [Concomitant]
     Active Substance: AMINO ACIDS\DEXTROSE\ELECTROLYTES NOS\SOYBEAN OIL
     Indication: MEDICAL DIET
     Dosage: DF
  5. FLEXERIL [Concomitant]
     Active Substance: CYCLOBENZAPRINE HYDROCHLORIDE
     Indication: MUSCLE RELAXANT THERAPY
     Dosage: DF, PRN
  6. GATTEX [Suspect]
     Active Substance: TEDUGLUTIDE\WATER
     Indication: SHORT-BOWEL SYNDROME
     Dosage: DF
     Route: 058
     Dates: start: 20130918
  7. FIBER [Concomitant]
     Active Substance: PSYLLIUM HUSK
     Dosage: DF
  8. IMODIUM [Concomitant]
     Active Substance: LOPERAMIDE HYDROCHLORIDE
     Dosage: DF
  9. TPN [Concomitant]
     Active Substance: AMINO ACIDS\DEXTROSE\ELECTROLYTES NOS\SOYBEAN OIL
     Dosage: DF
     Dates: start: 2015, end: 20150828
  10. PROTONIX [Concomitant]
     Active Substance: PANTOPRAZOLE SODIUM
     Dosage: DF

REACTIONS (18)
  - Small intestinal obstruction [Unknown]
  - Impaired self-care [Unknown]
  - Hypovolaemic shock [Recovered/Resolved]
  - Abdominal pain [Recovered/Resolved]
  - Lethargy [Unknown]
  - Confusional state [Recovering/Resolving]
  - Urinary bladder rupture [Unknown]
  - Generalised oedema [Unknown]
  - Failure to thrive [Unknown]
  - Oedema peripheral [Unknown]
  - Gait disturbance [Unknown]
  - Blood albumin decreased [Recovering/Resolving]
  - Coordination abnormal [Recovering/Resolving]
  - Food intolerance [Unknown]
  - Asthenia [Unknown]
  - Vomiting [Recovered/Resolved]
  - Malnutrition [Unknown]
  - Device related infection [Recovering/Resolving]

NARRATIVE: CASE EVENT DATE: 201504
